FAERS Safety Report 18031568 (Version 1)
Quarter: 2020Q3

REPORT INFORMATION
  Report Type: Spontaneous
  Country: US (occurrence: US)
  Receive Date: 20200716
  Receipt Date: 20200716
  Transmission Date: 20201103
  Serious: No
  Sender: FDA-Public Use
  Company Number: US-PFIZER INC-2020270397

PATIENT
  Age: 86 Year
  Sex: Female

DRUGS (1)
  1. RETACRIT [Suspect]
     Active Substance: EPOETIN ALFA-EPBX
     Dosage: UNK (10,000 UNITS)

REACTIONS (1)
  - Haemoglobin abnormal [Unknown]

NARRATIVE: CASE EVENT DATE: 20200620
